FAERS Safety Report 4887720-X (Version None)
Quarter: 2006Q1

REPORT INFORMATION
  Report Type: 
  Country: None (occurrence: None)
  Receive Date: 20060123
  Receipt Date: 20060119
  Transmission Date: 20060701
  Serious: Yes (Hospitalization)
  Sender: FDA-Public Use
  Company Number: CH-GLAXOSMITHKLINE-B0407367A

PATIENT
  Age: 70 Year
  Sex: Female
  Weight: 68 kg

DRUGS (8)
  1. AUGMENTIN [Suspect]
     Indication: PROPHYLAXIS
     Dosage: 625MG THREE TIMES PER DAY
     Route: 048
     Dates: start: 20051113
  2. NOVALGIN [Suspect]
     Indication: ABDOMINAL PAIN
     Dosage: 500MG FOUR TIMES PER DAY
     Route: 048
     Dates: start: 20051112, end: 20051120
  3. ACETAMINOPHEN [Suspect]
     Indication: DRUG USE FOR UNKNOWN INDICATION
     Dosage: 1G FOUR TIMES PER DAY
     Route: 065
     Dates: start: 20051112
  4. ASPIRIN [Suspect]
     Indication: DRUG USE FOR UNKNOWN INDICATION
     Dosage: 100MG PER DAY
     Route: 065
  5. ATACAND [Suspect]
     Indication: DRUG USE FOR UNKNOWN INDICATION
     Dosage: 8MG PER DAY
     Route: 048
  6. FLUDEX [Suspect]
     Indication: DRUG USE FOR UNKNOWN INDICATION
     Dosage: 1.5MG PER DAY
     Route: 048
  7. EUTHYROX [Concomitant]
     Dosage: 50MCG PER DAY
     Route: 048
  8. SIMVASTATIN [Concomitant]
     Dosage: 40MG PER DAY
     Route: 065

REACTIONS (1)
  - AGRANULOCYTOSIS [None]
